FAERS Safety Report 19668599 (Version 3)
Quarter: 2021Q4

REPORT INFORMATION
  Report Type: Report from Study
  Country: US (occurrence: US)
  Receive Date: 20210806
  Receipt Date: 20211021
  Transmission Date: 20220303
  Serious: No
  Sender: FDA-Public Use
  Company Number: NVSC2021US177764

PATIENT
  Sex: Female

DRUGS (1)
  1. ENTRESTO [Suspect]
     Active Substance: SACUBITRIL\VALSARTAN
     Indication: Product used for unknown indication
     Dosage: 1 DF, BID (49/51MG)
     Route: 048
     Dates: start: 202107

REACTIONS (4)
  - Frequent bowel movements [Unknown]
  - Blood pressure decreased [Unknown]
  - Gingival erythema [Unknown]
  - Gingival bleeding [Unknown]
